FAERS Safety Report 9725307 (Version 1)
Quarter: 2013Q4

REPORT INFORMATION
  Report Type: Spontaneous
  Country: US (occurrence: US)
  Receive Date: 20131203
  Receipt Date: 20131203
  Transmission Date: 20140711
  Serious: No
  Sender: FDA-Public Use
  Company Number: US-B.I. PHARMACEUTICALS,INC./RIDGEFIELD-2013-BI-38371BP

PATIENT
  Age: 58 Year
  Sex: Female

DRUGS (5)
  1. COMBIVENT [Suspect]
     Indication: CHRONIC OBSTRUCTIVE PULMONARY DISEASE
     Dosage: STRENGTH: 20 MCG / 100 MCG; DAILY DOSE: 160 MCG/ 800 MCG
     Route: 055
     Dates: start: 20131116
  2. ZOLPIDEM TARTRATE [Concomitant]
     Indication: MIGRAINE
     Route: 048
  3. PROVENTIL [Concomitant]
     Route: 055
  4. ESTAZOLAM [Concomitant]
     Route: 048
  5. IMMITREX [Concomitant]
     Indication: MIGRAINE
     Route: 048

REACTIONS (4)
  - Dyspnoea [Not Recovered/Not Resolved]
  - Cough [Not Recovered/Not Resolved]
  - Prescribed overdose [Unknown]
  - Drug ineffective [Not Recovered/Not Resolved]
